FAERS Safety Report 8927545 (Version 1)
Quarter: 2012Q4

REPORT INFORMATION
  Report Type: 
  Country: US (occurrence: US)
  Receive Date: 20121127
  Receipt Date: 20121127
  Transmission Date: 20130627
  Serious: Yes (Other)
  Sender: FDA-Public Use
  Company Number: US-ROCHE-1158952

PATIENT
  Age: 55 Year
  Sex: Female

DRUGS (8)
  1. ACTEMRA [Suspect]
     Indication: RHEUMATOID ARTHRITIS
     Route: 042
  2. LYRICA [Concomitant]
     Route: 048
  3. AZULFIDINE [Concomitant]
  4. STATIN (UNK INGREDIENTS) [Concomitant]
  5. POTASSIUM [Concomitant]
  6. VITAMIN D [Concomitant]
  7. VITAMIN B COMPLEX [Concomitant]
  8. TOPAMAX [Concomitant]
     Route: 065

REACTIONS (1)
  - Pancreatitis [Recovered/Resolved]
